FAERS Safety Report 22005904 (Version 2)
Quarter: 2024Q2

REPORT INFORMATION
  Report Type: Spontaneous
  Country: FR (occurrence: FR)
  Receive Date: 20230217
  Receipt Date: 20240426
  Transmission Date: 20240716
  Serious: Yes (Hospitalization, Other)
  Sender: FDA-Public Use
  Company Number: FR-009507513-2302FRA005531

PATIENT
  Age: 58 Year
  Sex: Male
  Weight: 86.1 kg

DRUGS (7)
  1. SITAGLIPTIN PHOSPHATE [Suspect]
     Active Substance: SITAGLIPTIN PHOSPHATE
     Indication: Diabetes mellitus management
     Dosage: UNK
     Route: 048
     Dates: start: 20220908
  2. INSULIN GLARGINE [Suspect]
     Active Substance: INSULIN GLARGINE
     Indication: Diabetes mellitus management
     Dosage: UNK
     Dates: start: 20220908
  3. METFORMIN [Suspect]
     Active Substance: METFORMIN HYDROCHLORIDE
     Indication: Diabetes mellitus management
     Dosage: UNK
     Dates: start: 20220908
  4. ATORVASTATIN CALCIUM [Concomitant]
     Active Substance: ATORVASTATIN CALCIUM
     Indication: Dyslipidaemia
     Dosage: 20 MILLIGRAM, QD
     Dates: start: 2020
  5. COVERAM [Concomitant]
     Active Substance: AMLODIPINE\PERINDOPRIL
     Indication: Hypertension
     Dosage: 10 MILLIGRAM, QD
     Dates: start: 2020
  6. KARDEGIC [Concomitant]
     Active Substance: ASPIRIN DL-LYSINE
     Indication: Cerebrovascular accident
     Dosage: 160 MILLIGRAM, QD
     Dates: start: 20220720
  7. PREDNISOLONE [Concomitant]
     Active Substance: PREDNISOLONE
     Indication: Polymyalgia rheumatica
     Dosage: 15 MILLIGRAM, QD
     Route: 048
     Dates: start: 20220707

REACTIONS (1)
  - Steroid diabetes [Recovered/Resolved]

NARRATIVE: CASE EVENT DATE: 20221001
